FAERS Safety Report 10674141 (Version 1)
Quarter: 2014Q4

REPORT INFORMATION
  Report Type: Spontaneous
  Country: US (occurrence: None)
  Receive Date: 20141223
  Receipt Date: 20141223
  Transmission Date: 20150529
  Serious: No
  Sender: FDA-Public Use
  Company Number: None

PATIENT
  Age: 67 Year
  Sex: Male

DRUGS (1)
  1. CAPECITABINE. [Suspect]
     Active Substance: CAPECITABINE
     Indication: COLORECTAL CANCER
     Dosage: 1500 MG BID ORAL  14 DAYS ON  7 DAYS OFF
     Route: 048
     Dates: start: 20141202

REACTIONS (3)
  - Fatigue [None]
  - Abdominal pain upper [None]
  - Peripheral swelling [None]

NARRATIVE: CASE EVENT DATE: 20141202
